FAERS Safety Report 18394541 (Version 1)
Quarter: 2020Q4

REPORT INFORMATION
  Report Type: Spontaneous
  Country: HR (occurrence: HR)
  Receive Date: 20201017
  Receipt Date: 20201017
  Transmission Date: 20210114
  Serious: Yes (Other)
  Sender: FDA-Public Use
  Company Number: NVSC2020HR275227

PATIENT
  Sex: Female
  Weight: 50 kg

DRUGS (3)
  1. PARACETAMOL [Suspect]
     Active Substance: ACETAMINOPHEN
     Indication: PRODUCT USED FOR UNKNOWN INDICATION
     Dosage: 4 G, QD
     Route: 048
     Dates: start: 202009, end: 202009
  2. IBUPROFEN. [Suspect]
     Active Substance: IBUPROFEN
     Indication: PRODUCT USED FOR UNKNOWN INDICATION
     Dosage: 3 G, QD
     Route: 048
     Dates: start: 202009, end: 202009
  3. MEBENDAZOL [Suspect]
     Active Substance: MEBENDAZOLE
     Indication: PRODUCT USED FOR UNKNOWN INDICATION
     Dosage: 8 DF, QD (1 DF = 1 TBL)
     Route: 048
     Dates: start: 202009, end: 202009

REACTIONS (4)
  - Suicide attempt [Unknown]
  - Chromaturia [Unknown]
  - Haematuria [Unknown]
  - Intentional overdose [Unknown]

NARRATIVE: CASE EVENT DATE: 202009
